FAERS Safety Report 5187323-6 (Version None)
Quarter: 2006Q4

REPORT INFORMATION
  Report Type: 
  Country: None (occurrence: None)
  Receive Date: 20061214
  Receipt Date: 20061204
  Transmission Date: 20070319
  Serious: Yes (Hospitalization, Other)
  Sender: FDA-Public Use
  Company Number: 2006146827

PATIENT
  Age: 51 Year
  Sex: Male

DRUGS (14)
  1. LYRICA [Suspect]
     Indication: NEUROPATHY PERIPHERAL
     Dosage: 75 MG (75 MG, 1 IN 1 D), ORAL
     Route: 048
     Dates: start: 20061121, end: 20061121
  2. ALCOHOL          (ETHANOL) [Concomitant]
  3. ATROVENT [Concomitant]
  4. BUMETANIDE [Concomitant]
  5. INSULATARD NPH HUMAN [Concomitant]
  6. MOVICOLON (MACROGOL, POTASSIUM CHLORIDE, SODIUM BICARBONATE, SODIUM CH [Concomitant]
  7. NIFEDIPINE [Concomitant]
  8. NOVORAPID (INSULIN ASPART) [Concomitant]
  9. CLONAZEPAM [Concomitant]
  10. SERETIDE (FLUTICASONE PROPIONATE, SALMETEROL XINAFOATE) [Concomitant]
  11. SLOW-K [Concomitant]
  12. SPIRONOLACTONE [Concomitant]
  13. THYRAX (LEVOTHYROXINE) [Concomitant]
  14. TRIAMTERENE (TRIAMTERENE) [Concomitant]

REACTIONS (6)
  - ACCIDENT [None]
  - ALCOHOL USE [None]
  - BALANCE DISORDER [None]
  - FALL [None]
  - FEELING DRUNK [None]
  - LOSS OF CONSCIOUSNESS [None]
